FAERS Safety Report 21968974 (Version 1)
Quarter: 2023Q1

REPORT INFORMATION
  Report Type: Spontaneous
  Country: US (occurrence: None)
  Receive Date: 20230207
  Receipt Date: 20230207
  Transmission Date: 20230418
  Serious: Yes (Hospitalization)
  Sender: FDA-Public Use
  Company Number: None

PATIENT
  Age: 27 Year
  Sex: Female
  Weight: 63 kg

DRUGS (1)
  1. RHOFADE [Suspect]
     Active Substance: OXYMETAZOLINE HYDROCHLORIDE
     Dates: start: 20221120, end: 20221210

REACTIONS (8)
  - Erythema [None]
  - Flushing [None]
  - Papule [None]
  - Capillary fragility [None]
  - Psychiatric symptom [None]
  - Insomnia [None]
  - Mental impairment [None]
  - Quality of life decreased [None]

NARRATIVE: CASE EVENT DATE: 20230101
